FAERS Safety Report 19605232 (Version 1)
Quarter: 2021Q3

REPORT INFORMATION
  Report Type: Spontaneous
  Country: BR (occurrence: BR)
  Receive Date: 20210723
  Receipt Date: 20210723
  Transmission Date: 20211014
  Serious: Yes (Hospitalization)
  Sender: FDA-Public Use
  Company Number: BR-ASTRAZENECA-2021A629944

PATIENT
  Sex: Male

DRUGS (3)
  1. DURVALUMAB. [Suspect]
     Active Substance: DURVALUMAB
     Indication: BRONCHIAL CARCINOMA
     Route: 042
  2. DURVALUMAB. [Suspect]
     Active Substance: DURVALUMAB
     Indication: BRONCHIAL CARCINOMA
     Route: 042
     Dates: start: 20201104, end: 202011
  3. DURVALUMAB. [Suspect]
     Active Substance: DURVALUMAB
     Indication: BRONCHIAL CARCINOMA
     Route: 042
     Dates: start: 20201210

REACTIONS (3)
  - Acute coronary syndrome [Recovered/Resolved]
  - Chest pain [Recovered/Resolved]
  - Coronary artery occlusion [Recovered/Resolved]

NARRATIVE: CASE EVENT DATE: 20201119
